FAERS Safety Report 21094503 (Version 1)
Quarter: 2022Q3

REPORT INFORMATION
  Report Type: Spontaneous
  Country: US (occurrence: None)
  Receive Date: 20220715
  Receipt Date: 20220715
  Transmission Date: 20221027
  Serious: Yes (Life-Threatening, Disabling, Other)
  Sender: FDA-Public Use
  Company Number: None

PATIENT
  Age: 77 Year
  Sex: Male
  Weight: 63 kg

DRUGS (1)
  1. KEYTRUDA [Suspect]
     Active Substance: PEMBROLIZUMAB
     Indication: Non-small cell lung cancer
     Dates: start: 20180101, end: 20180801

REACTIONS (12)
  - Colitis [None]
  - Pneumonitis [None]
  - Myocarditis [None]
  - Antiphospholipid syndrome [None]
  - Lymphopenia [None]
  - Gastritis [None]
  - Gastrointestinal haemorrhage [None]
  - Pancreatitis [None]
  - Nephritis [None]
  - Vasculitis [None]
  - Arthralgia [None]
  - Antinuclear antibody positive [None]

NARRATIVE: CASE EVENT DATE: 20220715
